FAERS Safety Report 16666232 (Version 1)
Quarter: 2019Q3

REPORT INFORMATION
  Report Type: Spontaneous
  Country: US (occurrence: US)
  Receive Date: 20190805
  Receipt Date: 20190805
  Transmission Date: 20191004
  Serious: Yes (Other)
  Sender: FDA-Public Use
  Company Number: US-ACCORD-092668

PATIENT
  Age: 56 Year
  Sex: Female

DRUGS (11)
  1. LISINOPRIL. [Concomitant]
     Active Substance: LISINOPRIL
     Dates: start: 2012
  2. ALPRAZOLAM. [Concomitant]
     Active Substance: ALPRAZOLAM
     Dates: start: 2012
  3. PRAMIPEXOLE/PRAMIPEXOLE DIHYDROCHLORIDE [Concomitant]
     Dates: start: 2012
  4. ONDANSETRON [Concomitant]
     Active Substance: ONDANSETRON
     Dates: start: 2012
  5. HYDROCODONE [Concomitant]
     Active Substance: HYDROCODONE
     Dates: start: 2012
  6. LORAZEPAM. [Concomitant]
     Active Substance: LORAZEPAM
     Dates: start: 2012
  7. PARAPLATIN [Suspect]
     Active Substance: CARBOPLATIN
     Indication: BREAST CANCER
     Dosage: NUMBER OF CYCLES: 06
     Dates: start: 20150130, end: 20150515
  8. TRAMADOL. [Concomitant]
     Active Substance: TRAMADOL
     Dates: start: 2012
  9. VENLAFAXINE/VENLAFAXINE HYDROCHLORIDE [Concomitant]
     Dates: start: 2012
  10. CYCLOBENZAPRINE. [Concomitant]
     Active Substance: CYCLOBENZAPRINE
     Dates: start: 2012
  11. DOCETAXEL ACCORD [Suspect]
     Active Substance: DOCETAXEL
     Indication: BREAST CANCER
     Dosage: NUMBER OF CYCLES: 06
     Dates: start: 20150130, end: 20150515

REACTIONS (1)
  - Alopecia [Not Recovered/Not Resolved]

NARRATIVE: CASE EVENT DATE: 201501
